FAERS Safety Report 10134281 (Version 1)
Quarter: 2014Q2

REPORT INFORMATION
  Report Type: Spontaneous
  Country: US (occurrence: US)
  Receive Date: 20140428
  Receipt Date: 20140428
  Transmission Date: 20141212
  Serious: Yes (Other)
  Sender: FDA-Public Use
  Company Number: US-TEVA-478231USA

PATIENT
  Sex: Female

DRUGS (5)
  1. AMPHETAMINE W/DEXTROAMPHETAMINE [Suspect]
     Dosage: 40 MILLIGRAM DAILY;
  2. WELLBUTRIN [Concomitant]
  3. ESTRADIOL [Concomitant]
  4. L-THYROXINE [Concomitant]
     Indication: THYROID DISORDER
  5. ALPRAZOLAM [Concomitant]

REACTIONS (6)
  - Amyotrophic lateral sclerosis [Unknown]
  - Coeliac disease [Unknown]
  - Gait disturbance [Unknown]
  - Musculoskeletal disorder [Unknown]
  - Muscle atrophy [Unknown]
  - Nervous system disorder [Unknown]
